FAERS Safety Report 21137209 (Version 1)
Quarter: 2022Q3

REPORT INFORMATION
  Report Type: Spontaneous
  Country: US (occurrence: US)
  Receive Date: 20220727
  Receipt Date: 20220727
  Transmission Date: 20221026
  Serious: No
  Sender: FDA-Public Use
  Company Number: US-CORDEN PHARMA LATINA S.P.A.-US-2021COR000018

PATIENT

DRUGS (1)
  1. GLEOSTINE [Suspect]
     Active Substance: LOMUSTINE

REACTIONS (2)
  - Product dose omission issue [Unknown]
  - Product physical issue [Unknown]
